FAERS Safety Report 8169390-0 (Version None)
Quarter: 2012Q1

REPORT INFORMATION
  Report Type: 
  Country: None (occurrence: None)
  Receive Date: 20120222
  Receipt Date: 20120208
  Transmission Date: 20120608
  Serious: Yes (Other)
  Sender: FDA-Public Use
  Company Number: DSA_55135_2012

PATIENT
  Age: 55 Year
  Sex: Male

DRUGS (9)
  1. FLUOROURACIL [Suspect]
     Indication: METASTASES TO LIVER
     Dosage: (EVERY CYCLE)
  2. FLUOROURACIL [Suspect]
     Indication: METASTASES TO LUNG
     Dosage: (EVERY CYCLE)
  3. FLUOROURACIL [Concomitant]
  4. OXALIPLATIN [Suspect]
     Indication: METASTASES TO LIVER
     Dosage: (EVERY CYCLE)
  5. OXALIPLATIN [Suspect]
     Indication: METASTASES TO LUNG
     Dosage: (EVERY CYCLE)
  6. BEVACIZUMAB [Concomitant]
  7. THERAPEUTIC RADIOPHARMACEUTICALS [Concomitant]
  8. CALCIUM FOLINATB (CALCIUM FOLINATE) [Suspect]
     Indication: METASTASES TO LIVER
     Dosage: (EVERY CYCLE)
  9. CALCIUM FOLINATB (CALCIUM FOLINATE) [Suspect]
     Indication: METASTASES TO LUNG
     Dosage: (EVERY CYCLE)

REACTIONS (1)
  - NEUROPATHY PERIPHERAL [None]
